FAERS Safety Report 6524763-4 (Version None)
Quarter: 2010Q1

REPORT INFORMATION
  Report Type: 
  Country: None (occurrence: None)
  Receive Date: 20100104
  Receipt Date: 20091221
  Transmission Date: 20100710
  Serious: Yes (Other)
  Sender: FDA-Public Use
  Company Number: JP-PFIZER INC-2009314460

PATIENT

DRUGS (2)
  1. UNASYN [Suspect]
     Route: 042
  2. VOLTAREN [Concomitant]

REACTIONS (2)
  - CREATININE RENAL CLEARANCE INCREASED [None]
  - RENAL TUBULAR NECROSIS [None]
